FAERS Safety Report 9885307 (Version 2)
Quarter: 2014Q1

REPORT INFORMATION
  Report Type: Spontaneous
  Country: US (occurrence: US)
  Receive Date: 20140210
  Receipt Date: 20140319
  Transmission Date: 20141002
  Serious: No
  Sender: FDA-Public Use
  Company Number: US-009507513-1402USA003332

PATIENT
  Sex: Female
  Weight: 68.27 kg

DRUGS (1)
  1. ASMANEX TWISTHALER [Suspect]
     Dosage: (STRENGTH 220MCG, 120 DOSES) 4 DF, QD
     Route: 055
     Dates: start: 20101130

REACTIONS (4)
  - Drug dose omission [Unknown]
  - Incorrect dose administered [Unknown]
  - Product quality issue [Unknown]
  - No adverse event [Unknown]
